FAERS Safety Report 6604825-3 (Version None)
Quarter: 2010Q1

REPORT INFORMATION
  Report Type: 
  Country: None (occurrence: None)
  Receive Date: 20100226
  Receipt Date: 20100217
  Transmission Date: 20100710
  Serious: Yes (Hospitalization)
  Sender: FDA-Public Use
  Company Number: ES-JNJFOC-20100203708

PATIENT
  Age: 56 Year
  Sex: Female
  Weight: 160 kg

DRUGS (5)
  1. REMICADE [Suspect]
     Indication: PSORIASIS
     Dosage: 3 DOSES GIVEN
     Route: 042
     Dates: start: 20091201, end: 20100120
  2. DOGMATIL [Concomitant]
  3. METFORMIN HCL [Concomitant]
  4. ADIRO [Concomitant]
  5. CEMIDON [Concomitant]
     Indication: ANTIBIOTIC PROPHYLAXIS

REACTIONS (1)
  - PULMONARY TUBERCULOSIS [None]
